FAERS Safety Report 5071905-6 (Version None)
Quarter: 2006Q3

REPORT INFORMATION
  Report Type: 
  Country: None (occurrence: None)
  Receive Date: 20060804
  Receipt Date: 20060727
  Transmission Date: 20061208
  Serious: Yes (Hospitalization)
  Sender: FDA-Public Use
  Company Number: CA-ABBOTT-06P-028-0339131-00

PATIENT
  Sex: Female
  Weight: 72.64 kg

DRUGS (12)
  1. HUMIRA [Suspect]
     Indication: RHEUMATOID ARTHRITIS
     Route: 058
     Dates: start: 20060518
  2. UNSPECIFIED NARCOTICS [Suspect]
     Indication: PAIN
  3. RISEDRONATE SODIUM [Concomitant]
     Indication: DRUG USE FOR UNKNOWN INDICATION
     Route: 048
  4. CALCIUM WITH VITAMIN D [Concomitant]
     Indication: DRUG USE FOR UNKNOWN INDICATION
     Route: 048
  5. DOCUSATE SODIUM [Concomitant]
     Indication: CONSTIPATION
     Route: 048
  6. FOLIC ACID [Concomitant]
     Indication: DRUG USE FOR UNKNOWN INDICATION
     Route: 048
  7. METHOTREXATE SODIUM [Concomitant]
     Indication: DRUG USE FOR UNKNOWN INDICATION
     Route: 050
  8. MORPHINE [Concomitant]
     Indication: DRUG USE FOR UNKNOWN INDICATION
  9. AMLODIPINE BESYLATE [Concomitant]
     Indication: DRUG USE FOR UNKNOWN INDICATION
     Route: 048
  10. PANTOPRAZOLE SODIUM [Concomitant]
     Indication: DRUG USE FOR UNKNOWN INDICATION
     Route: 048
  11. HYDROXYCHLOROQUINE PHOSPHATE [Concomitant]
     Indication: DRUG USE FOR UNKNOWN INDICATION
     Route: 048
  12. PREDNISONE TAB [Concomitant]
     Indication: DRUG USE FOR UNKNOWN INDICATION
     Route: 048

REACTIONS (10)
  - BACK INJURY [None]
  - BACK PAIN [None]
  - CONSTIPATION [None]
  - DIZZINESS [None]
  - DYSPNOEA [None]
  - ECCHYMOSIS [None]
  - FALL [None]
  - HEAD INJURY [None]
  - JOINT INJURY [None]
  - LABYRINTHITIS [None]
